FAERS Safety Report 6670876-6 (Version None)
Quarter: 2010Q2

REPORT INFORMATION
  Report Type: 
  Country: None (occurrence: None)
  Receive Date: 20100407
  Receipt Date: 20100331
  Transmission Date: 20101027
  Serious: Yes (Life-Threatening, Other)
  Sender: FDA-Public Use
  Company Number: FR-BRISTOL-MYERS SQUIBB COMPANY-15047335

PATIENT
  Age: 61 Year
  Sex: Female

DRUGS (3)
  1. GLUCOPHAGE [Suspect]
     Route: 048
  2. OLMESARTAN MEDOXOMIL + HCTZ [Concomitant]
  3. ACTOS [Concomitant]

REACTIONS (5)
  - CYANOSIS [None]
  - LACTIC ACIDOSIS [None]
  - PANCREATITIS ACUTE [None]
  - RENAL FAILURE ACUTE [None]
  - SHOCK [None]
